FAERS Safety Report 7456684-7 (Version None)
Quarter: 2011Q2

REPORT INFORMATION
  Report Type: 
  Country: None (occurrence: None)
  Receive Date: 20110503
  Receipt Date: 20100505
  Transmission Date: 20111010
  Serious: Yes (Other)
  Sender: FDA-Public Use
  Company Number: US-SANOFI-AVENTIS-2010SA026486

PATIENT
  Sex: Male

DRUGS (3)
  1. INSULIN DETEMIR [Concomitant]
  2. DRUG USED IN DIABETES [Concomitant]
  3. APIDRA [Suspect]
     Route: 058

REACTIONS (1)
  - ANGIOEDEMA [None]
